FAERS Safety Report 4455149-4 (Version None)
Quarter: 2004Q3

REPORT INFORMATION
  Report Type: 
  Country: None (occurrence: None)
  Receive Date: 20040917
  Receipt Date: 20040907
  Transmission Date: 20050211
  Serious: Yes (Disabling, Other)
  Sender: FDA-Public Use
  Company Number: 2004058655

PATIENT
  Age: 77 Year
  Sex: Female

DRUGS (4)
  1. LIPITOR [Suspect]
     Indication: ILL-DEFINED DISORDER
     Dosage: 10 MG (1 IN 1 D), ORAL
     Route: 048
     Dates: end: 20040816
  2. NICERGOLINE (NICERGOLINE) [Concomitant]
  3. LOXOPROFEN SODIUM (LOXOPROFEN SODIUM) [Concomitant]
  4. MOSAPRIDE CITRATE (MOSAPRIDE CITRATE) [Concomitant]

REACTIONS (4)
  - COGNITIVE DISORDER [None]
  - ELECTROCARDIOGRAM ABNORMAL [None]
  - PORIOMANIA [None]
  - RHABDOMYOLYSIS [None]
